FAERS Safety Report 5346824-8 (Version None)
Quarter: 2007Q2

REPORT INFORMATION
  Report Type: 
  Country: None (occurrence: None)
  Receive Date: 20070604
  Receipt Date: 20070523
  Transmission Date: 20071010
  Serious: Yes (Death, Life-Threatening)
  Sender: FDA-Public Use
  Company Number: 2007-00510

PATIENT
  Age: 61 Year
  Sex: Female

DRUGS (14)
  1. VELCADE [Suspect]
     Indication: MULTIPLE MYELOMA
     Dosage: 1.80 MG,
     Dates: start: 20061211, end: 20070220
  2. DEXAMETHASONE TAB [Suspect]
     Indication: MULTIPLE MYELOMA
     Dosage: 20.00 MG
     Dates: start: 20070105, end: 20070221
  3. PREDNISOLONE [Suspect]
     Indication: DRUG USE FOR UNKNOWN INDICATION
     Dosage: 10.00 MG, ORAL
     Route: 048
     Dates: start: 20070104
  4. SULFAMETHOXAZOLE + TRIMETHOPRIM [Concomitant]
  5. DIFLUCAN [Concomitant]
  6. ALENDRONATE SODIUM [Concomitant]
  7. ALLOPURINOL [Concomitant]
  8. SELBEX (TEPRENONE) [Concomitant]
  9. NIZATIDINE [Concomitant]
  10. MAGNESIUM OXIDE (MAGNESIUM OXIDE) [Concomitant]
  11. ZOMETA [Concomitant]
  12. LASIX [Concomitant]
  13. PENTAZOCINE LACTATE [Concomitant]
  14. PLATELETS [Concomitant]

REACTIONS (9)
  - ACTIVITIES OF DAILY LIVING IMPAIRED [None]
  - DEEP VEIN THROMBOSIS [None]
  - HAEMOGLOBIN DECREASED [None]
  - HYPOAESTHESIA [None]
  - LYMPHOPENIA [None]
  - PLATELET COUNT DECREASED [None]
  - PULMONARY EMBOLISM [None]
  - PULMONARY INFARCTION [None]
  - RESPIRATORY FAILURE [None]
